FAERS Safety Report 10210688 (Version 3)
Quarter: 2014Q4

REPORT INFORMATION
  Report Type: Report from Study
  Country: JP (occurrence: JP)
  Receive Date: 20140602
  Receipt Date: 20141231
  Transmission Date: 20150528
  Serious: Yes (Death)
  Sender: FDA-Public Use
  Company Number: JP-B.I. PHARMACEUTICALS,INC./RIDGEFIELD-2014-BI-19499NB

PATIENT
  Age: 87 Year
  Sex: Male
  Weight: 48 kg

DRUGS (13)
  1. GLYCYRON [Concomitant]
     Active Substance: AMMONIUM GLYCYRRHIZATE\GLYCINE\METHIONINE
     Indication: PRODUCT USED FOR UNKNOWN INDICATION
     Dosage: 3 ANZ
     Route: 050
     Dates: start: 20131205, end: 20131219
  2. ATELEC [Concomitant]
     Active Substance: CILNIDIPINE
     Indication: PRODUCT USED FOR UNKNOWN INDICATION
     Dosage: 10 MG
     Route: 050
     Dates: start: 20131217, end: 20131219
  3. OLMETEC [Suspect]
     Active Substance: OLMESARTAN MEDOXOMIL
     Indication: PRODUCT USED FOR UNKNOWN INDICATION
     Dosage: 20 MG
     Route: 050
     Dates: start: 20131128, end: 20131219
  4. RADICUT [Concomitant]
     Active Substance: EDARAVONE
     Indication: PRODUCT USED FOR UNKNOWN INDICATION
     Dosage: 60 MG
     Route: 042
     Dates: end: 20131205
  5. PRADAXA [Suspect]
     Active Substance: DABIGATRAN ETEXILATE MESYLATE
     Dosage: 220 MG
     Route: 050
     Dates: start: 20131129, end: 20131219
  6. BFLUID [Concomitant]
     Active Substance: AMINO ACIDS\DEXTROSE\ELECTROLYTES NOS\VITAMINS
     Indication: PRODUCT USED FOR UNKNOWN INDICATION
     Dosage: 1500 ML
     Route: 042
     Dates: end: 20131129
  7. PRADAXA [Suspect]
     Active Substance: DABIGATRAN ETEXILATE MESYLATE
     Indication: CEREBROVASCULAR ACCIDENT PROPHYLAXIS
     Dosage: 110 MG
     Route: 050
     Dates: start: 20131128, end: 20131128
  8. NEXIUM [Suspect]
     Active Substance: ESOMEPRAZOLE MAGNESIUM
     Indication: PROPHYLAXIS
     Dosage: 20 MG
     Route: 050
     Dates: start: 20131128, end: 20131219
  9. SYMMETREL [Concomitant]
     Active Substance: AMANTADINE HYDROCHLORIDE
     Indication: PROPHYLAXIS
     Dosage: 100 MG
     Route: 050
     Dates: start: 20131128, end: 20131219
  10. TSUMURA HANGEKOBOKUTO [Concomitant]
     Indication: PROPHYLAXIS
     Dosage: 5 G
     Route: 050
     Dates: start: 20131128, end: 20131219
  11. TANATRIL [Suspect]
     Active Substance: IMIDAPRIL
     Indication: PROPHYLAXIS
     Dosage: 5 MG
     Route: 050
     Dates: start: 20131128, end: 20131219
  12. SODIUM CHLORIDE. [Concomitant]
     Active Substance: SODIUM CHLORIDE
     Indication: PRODUCT USED FOR UNKNOWN INDICATION
     Dosage: 4 G
     Route: 050
     Dates: start: 20131205, end: 20131219
  13. SODIUM CHLORIDE. [Concomitant]
     Active Substance: SODIUM CHLORIDE
     Dosage: 60 ML
     Route: 042
     Dates: end: 20131129

REACTIONS (6)
  - Wrong technique in drug usage process [Unknown]
  - Hyponatraemia [Recovered/Resolved]
  - Hypertension [Unknown]
  - Hepatic function abnormal [Not Recovered/Not Resolved]
  - Pneumonia aspiration [Fatal]
  - Product use issue [Unknown]

NARRATIVE: CASE EVENT DATE: 20131129
